FAERS Safety Report 20146393 (Version 2)
Quarter: 2022Q1

REPORT INFORMATION
  Report Type: Report from Study
  Country: EG (occurrence: EG)
  Receive Date: 20211203
  Receipt Date: 20220319
  Transmission Date: 20220423
  Serious: Yes (Other)
  Sender: FDA-Public Use
  Company Number: EG-NOVARTISPH-NVSC2021EG274340

PATIENT
  Age: 34 Year
  Sex: Female

DRUGS (14)
  1. GILENYA [Suspect]
     Active Substance: FINGOLIMOD HYDROCHLORIDE
     Indication: Multiple sclerosis
     Dosage: 1 DOSAGE FORM, QD
     Route: 048
     Dates: start: 20211027
  2. GILENYA [Suspect]
     Active Substance: FINGOLIMOD HYDROCHLORIDE
     Dosage: 0.5 MG, QD
     Route: 048
     Dates: start: 202110
  3. VITAMIN D [Concomitant]
     Active Substance: VITAMIN D NOS
     Indication: Supplementation therapy
     Dosage: 0.5 MCG, QD
     Route: 048
     Dates: start: 2016
  4. VITAMIN D [Concomitant]
     Active Substance: VITAMIN D NOS
     Indication: Disability
  5. VITAMIN D [Concomitant]
     Active Substance: VITAMIN D NOS
     Indication: Myalgia
  6. CAL PREG [Concomitant]
     Indication: Supplementation therapy
     Dosage: UNK, BID
     Route: 048
     Dates: start: 20210403
  7. AMANTADINE SULFATE [Concomitant]
     Active Substance: AMANTADINE SULFATE
     Indication: Multiple sclerosis
     Dosage: UNK, BID
     Route: 048
     Dates: start: 2020
  8. GAPTIN [Concomitant]
     Indication: Neuralgia
     Dosage: UNK, QD
     Route: 048
     Dates: start: 202103
  9. GAPTIN [Concomitant]
     Indication: Sedation
     Dosage: UNK, QD
     Route: 048
     Dates: start: 202110
  10. THIOMED [Concomitant]
     Indication: Headache
     Dosage: UNK, QD (AS NEEDED)
     Route: 048
     Dates: start: 202110
  11. DEPOVIT B12 [Concomitant]
     Indication: Neuralgia
     Dosage: UNK, ONCE EVERY THREE DAYS
     Route: 065
     Dates: start: 2016
  12. CALCIUM [Concomitant]
     Active Substance: CALCIUM
     Indication: Product used for unknown indication
     Dosage: UNK, QD
     Route: 065
     Dates: start: 2016
  13. BENFOTIAMINE\CYANOCOBALAMIN\PYRIDOXINE HYDROCHLORIDE [Concomitant]
     Active Substance: BENFOTIAMINE\CYANOCOBALAMIN\PYRIDOXINE HYDROCHLORIDE
     Indication: Neuralgia
     Dosage: UNK, QD
     Route: 065
     Dates: start: 2016
  14. OMEGA 3 [Concomitant]
     Active Substance: CAPSAICIN
     Indication: Supplementation therapy
     Dosage: UNK, QD
     Route: 048
     Dates: start: 2021

REACTIONS (10)
  - Crystal urine present [Unknown]
  - Seizure [Recovering/Resolving]
  - Eye pain [Recovering/Resolving]
  - Pollakiuria [Recovered/Resolved]
  - Diplopia [Recovering/Resolving]
  - Burning sensation [Recovering/Resolving]
  - Vision blurred [Recovering/Resolving]
  - Pelvic pain [Recovering/Resolving]
  - Dyspepsia [Not Recovered/Not Resolved]
  - Abdominal pain upper [Not Recovered/Not Resolved]

NARRATIVE: CASE EVENT DATE: 20211027
